FAERS Safety Report 7933366-6 (Version None)
Quarter: 2011Q4

REPORT INFORMATION
  Report Type: 
  Country: None (occurrence: None)
  Receive Date: 20111122
  Receipt Date: 20111122
  Transmission Date: 20120403
  Serious: Yes (Other)
  Sender: FDA-Public Use
  Company Number: None

PATIENT
  Age: 41 Year
  Sex: Female
  Weight: 90.718 kg

DRUGS (2)
  1. TOPIRAMATE [Suspect]
     Indication: MIGRAINE
     Dosage: 2
     Route: 048
     Dates: start: 20111112, end: 20111118
  2. TOPIRAMATE [Suspect]
     Indication: HEADACHE
     Dosage: 2
     Route: 048
     Dates: start: 20111112, end: 20111118

REACTIONS (1)
  - MANIA [None]
